FAERS Safety Report 9025098 (Version 1)
Quarter: 2013Q1

REPORT INFORMATION
  Report Type: Spontaneous
  Country: GB (occurrence: GB)
  Receive Date: 20130121
  Receipt Date: 20130121
  Transmission Date: 20140127
  Serious: Yes (Other)
  Sender: FDA-Public Use
  Company Number: GB-JNJFOC-20130105576

PATIENT
  Age: 21 Year
  Sex: Female
  Weight: 52 kg

DRUGS (2)
  1. CO-CODAMOL [Suspect]
     Indication: DYSMENORRHOEA
     Route: 048
  2. CO-CODAMOL [Suspect]
     Indication: HEADACHE
     Route: 048

REACTIONS (8)
  - Migraine with aura [Unknown]
  - Depression [Unknown]
  - Dissociation [Unknown]
  - Emotional disorder [Unknown]
  - Irritability [Unknown]
  - Photophobia [Unknown]
  - Paraesthesia [Unknown]
  - Vomiting [Unknown]
